FAERS Safety Report 19357041 (Version 1)
Quarter: 2021Q2

REPORT INFORMATION
  Report Type: Report from Study
  Country: US (occurrence: US)
  Receive Date: 20210601
  Receipt Date: 20210601
  Transmission Date: 20210717
  Serious: No
  Sender: FDA-Public Use
  Company Number: NVSC2021US118018

PATIENT
  Sex: Male

DRUGS (1)
  1. ENTRESTO [Suspect]
     Active Substance: SACUBITRIL\VALSARTAN
     Indication: PRODUCT USED FOR UNKNOWN INDICATION
     Dosage: 50 MG, BID (24/26 MG), ONCE A DAY IF BP WAS LOW.
     Route: 048
     Dates: start: 20210517

REACTIONS (5)
  - Inappropriate schedule of product administration [Unknown]
  - Underdose [Unknown]
  - Blood pressure fluctuation [Unknown]
  - Hypotension [Unknown]
  - Hypertension [Unknown]
